FAERS Safety Report 15733560 (Version 2)
Quarter: 2020Q4

REPORT INFORMATION
  Report Type: Spontaneous
  Country: US (occurrence: US)
  Receive Date: 20181218
  Receipt Date: 20201113
  Transmission Date: 20210113
  Serious: Yes (Other)
  Sender: FDA-Public Use
  Company Number: US-HORMOSAN PHARMA GMBH-2018-08674

PATIENT
  Sex: Female
  Weight: 83.9 kg

DRUGS (9)
  1. ATORVASTATIN [Concomitant]
     Active Substance: ATORVASTATIN
     Indication: BLOOD CHOLESTEROL INCREASED
     Dosage: 20 MG, QD (AT NIGHT) FROM LAST 10 YEARS
     Route: 048
  2. LYRICA [Concomitant]
     Active Substance: PREGABALIN
     Indication: INTERVERTEBRAL DISC DISORDER
     Dosage: 100 MG, BID
     Route: 048
     Dates: start: 20180904
  3. METFORMIN [Concomitant]
     Active Substance: METFORMIN HYDROCHLORIDE
     Indication: DIABETES MELLITUS
     Dosage: 1000 MG, BID (STARTED 30 YEARS AGO WHEN SHE WAS 19)
     Route: 048
  4. DULOXETINE HYDROCHLORIDE. [Suspect]
     Active Substance: DULOXETINE HYDROCHLORIDE
     Indication: NEUROPATHY PERIPHERAL
     Dosage: 1 DF, QD, STARTED 2.5 YEARS AGO
     Route: 048
  5. GABAPENTIN. [Suspect]
     Active Substance: GABAPENTIN
     Indication: PRODUCT USED FOR UNKNOWN INDICATION
     Dosage: 5 DF, QD, THREE TIMES A DAY AND THEN 2 AT NIGHT
     Route: 065
  6. DILAUDID [Concomitant]
     Active Substance: HYDROMORPHONE HYDROCHLORIDE
     Indication: PAIN
     Dosage: 1 DF, QID
     Route: 065
  7. FLEXERIL [Concomitant]
     Active Substance: CYCLOBENZAPRINE HYDROCHLORIDE
     Indication: PAIN
     Dosage: 10 MG, TID
     Route: 048
  8. LYRICA [Concomitant]
     Active Substance: PREGABALIN
     Indication: DIABETES MELLITUS
  9. LYRICA [Concomitant]
     Active Substance: PREGABALIN
     Indication: NERVE INJURY

REACTIONS (4)
  - Neuropathy peripheral [Recovered/Resolved]
  - Product use in unapproved indication [Unknown]
  - Gait disturbance [Unknown]
  - Drug ineffective [Recovered/Resolved]
